FAERS Safety Report 25994750 (Version 1)
Quarter: 2025Q4

REPORT INFORMATION
  Report Type: Other
  Country: CA (occurrence: CA)
  Receive Date: 20251104
  Receipt Date: 20251104
  Transmission Date: 20260118
  Serious: Yes (Disabling)
  Sender: APOTEX
  Company Number: CA-PGRTD-001152163

PATIENT
  Age: 83 Year
  Sex: Male
  Weight: 89 kg

DRUGS (1)
  1. METFORMIN HYDROCHLORIDE [Suspect]
     Active Substance: METFORMIN HYDROCHLORIDE
     Indication: Diabetes mellitus
     Dosage: 1 EVERY 1 DAYS
     Route: 048

REACTIONS (2)
  - Product substitution issue [Recovering/Resolving]
  - Skin lesion [Recovering/Resolving]
